FAERS Safety Report 9253284 (Version 2)
Quarter: 2013Q2

REPORT INFORMATION
  Report Type: Report from Study
  Country: US (occurrence: US)
  Receive Date: 20130424
  Receipt Date: 20130503
  Transmission Date: 20140414
  Serious: Yes (Hospitalization)
  Sender: FDA-Public Use
  Company Number: US-GILEAD-2013-0073765

PATIENT
  Age: 21 Year
  Sex: Male

DRUGS (5)
  1. EMTRICITABINE/TENOFOVIR DISOPROXIL FUMARATE [Suspect]
     Indication: PROPHYLAXIS AGAINST HIV INFECTION
     Dosage: 1 DF, Q1WK
     Route: 048
     Dates: start: 20130306, end: 20130320
  2. DIPHENHYDRAMINE [Concomitant]
     Indication: SLEEP DISORDER
     Dosage: UNK
     Dates: start: 2004
  3. DIPHENHYDRAMINE [Concomitant]
     Indication: HEADACHE
  4. IBUPROFEN [Concomitant]
     Indication: MYALGIA
     Dosage: UNK
     Dates: start: 2009
  5. ACETAMINOPHEN [Concomitant]
     Indication: HEADACHE

REACTIONS (1)
  - Sickle cell anaemia with crisis [Unknown]
